FAERS Safety Report 13655990 (Version 1)
Quarter: 2017Q2

REPORT INFORMATION
  Report Type: Spontaneous
  Country: US (occurrence: US)
  Receive Date: 20170615
  Receipt Date: 20170615
  Transmission Date: 20170830
  Serious: No
  Sender: FDA-Public Use
  Company Number: US-BAUSCH-BL-2017-007419

PATIENT
  Sex: Male

DRUGS (1)
  1. BUPROPION HYDROBROMIDE [Suspect]
     Active Substance: BUPROPION HYDROBROMIDE
     Indication: SMOKING CESSATION THERAPY
     Route: 048

REACTIONS (2)
  - Off label use [Unknown]
  - Nightmare [Unknown]
